FAERS Safety Report 16808552 (Version 3)
Quarter: 2020Q2

REPORT INFORMATION
  Report Type: Spontaneous
  Country: US (occurrence: US)
  Receive Date: 20190916
  Receipt Date: 20200601
  Transmission Date: 20200713
  Serious: Yes (Other)
  Sender: FDA-Public Use
  Company Number: US-GILEAD-2019-0428008

PATIENT
  Age: 49 Year
  Sex: Female

DRUGS (51)
  1. DESCOVY [Concomitant]
     Active Substance: EMTRICITABINE\TENOFOVIR ALAFENAMIDE FUMARATE
  2. DRONABINOL. [Concomitant]
     Active Substance: DRONABINOL
  3. SPIRIVA [Concomitant]
     Active Substance: TIOTROPIUM BROMIDE MONOHYDRATE
  4. TRAMADOL. [Concomitant]
     Active Substance: TRAMADOL
  5. ERGOCALCIFEROL. [Concomitant]
     Active Substance: ERGOCALCIFEROL
  6. PROTONIX [Concomitant]
     Active Substance: PANTOPRAZOLE SODIUM
  7. CEFDINIR. [Concomitant]
     Active Substance: CEFDINIR
  8. PREDNISONE. [Concomitant]
     Active Substance: PREDNISONE
  9. AVELOX [Concomitant]
     Active Substance: MOXIFLOXACIN HYDROCHLORIDE
  10. VERAMYST [Concomitant]
     Active Substance: FLUTICASONE FUROATE
  11. BENTYL [Concomitant]
     Active Substance: DICYCLOMINE HYDROCHLORIDE
  12. MELOXICAM. [Concomitant]
     Active Substance: MELOXICAM
  13. XYZAL [Concomitant]
     Active Substance: LEVOCETIRIZINE DIHYDROCHLORIDE
  14. DAPSONE. [Concomitant]
     Active Substance: DAPSONE
  15. EPINEPHRINE. [Concomitant]
     Active Substance: EPINEPHRINE
  16. ESCITALOPRAM [Concomitant]
     Active Substance: ESCITALOPRAM OXALATE
  17. LIDOCAINE. [Concomitant]
     Active Substance: LIDOCAINE
  18. NYSTATIN. [Concomitant]
     Active Substance: NYSTATIN
  19. DEXILANT [Concomitant]
     Active Substance: DEXLANSOPRAZOLE
  20. CIPROFLOXACIN. [Concomitant]
     Active Substance: CIPROFLOXACIN
  21. TRUVADA [Suspect]
     Active Substance: EMTRICITABINE\TENOFOVIR DISOPROXIL FUMARATE
     Dosage: UNK
     Route: 065
     Dates: start: 2008, end: 2016
  22. ASPIRIN 81 [Concomitant]
     Active Substance: ASPIRIN
  23. FLUOCINONIDE. [Concomitant]
     Active Substance: FLUOCINONIDE
  24. HYDROCODONE [Concomitant]
     Active Substance: HYDROCODONE
  25. NORVIR [Concomitant]
     Active Substance: RITONAVIR
  26. RITONAVIR. [Concomitant]
     Active Substance: RITONAVIR
  27. MEPRON [Concomitant]
     Active Substance: ATOVAQUONE
  28. TRUVADA [Suspect]
     Active Substance: EMTRICITABINE\TENOFOVIR DISOPROXIL FUMARATE
     Indication: HIV INFECTION
     Dosage: UNK
     Route: 048
     Dates: start: 201012, end: 201609
  29. TRUVADA [Suspect]
     Active Substance: EMTRICITABINE\TENOFOVIR DISOPROXIL FUMARATE
     Dosage: UNK
     Route: 065
     Dates: start: 200811, end: 201012
  30. ACETAMINOPHEN. [Concomitant]
     Active Substance: ACETAMINOPHEN
  31. BISACODYL. [Concomitant]
     Active Substance: BISACODYL
  32. PREZISTA [Concomitant]
     Active Substance: DARUNAVIR ETHANOLATE
  33. SYMBICORT [Concomitant]
     Active Substance: BUDESONIDE\FORMOTEROL FUMARATE DIHYDRATE
  34. MONTELUKAST [Concomitant]
     Active Substance: MONTELUKAST SODIUM
  35. FEXOFENADINE [Concomitant]
     Active Substance: FEXOFENADINE HYDROCHLORIDE
  36. COMBIVIR [Concomitant]
     Active Substance: LAMIVUDINE\ZIDOVUDINE
  37. ATRIPLA [Suspect]
     Active Substance: EFAVIRENZ\EMTRICITABINE\TENOFOVIR DISOPROXIL FUMARATE
     Indication: HIV INFECTION
     Dosage: UNK
     Route: 048
     Dates: start: 200707, end: 200810
  38. ALPRAZOLAM. [Concomitant]
     Active Substance: ALPRAZOLAM
  39. DOCUSATE SODIUM. [Concomitant]
     Active Substance: DOCUSATE SODIUM
  40. ISENTRESS [Concomitant]
     Active Substance: RALTEGRAVIR POTASSIUM
  41. VENTOLIN [Concomitant]
     Active Substance: ALBUTEROL SULFATE
  42. NASONEX [Concomitant]
     Active Substance: MOMETASONE FUROATE
  43. TUSSIONEX [CHLORPHENAMINE;HYDROCODONE BITARTRATE] [Concomitant]
  44. METRONIDAZOLE. [Concomitant]
     Active Substance: METRONIDAZOLE
  45. KETOCONAZOLE. [Concomitant]
     Active Substance: KETOCONAZOLE
  46. ADVAIR HFA [Concomitant]
     Active Substance: FLUTICASONE PROPIONATE\SALMETEROL XINAFOATE
  47. CEPHALEXIN [CEFALEXIN] [Concomitant]
     Active Substance: CEPHALEXIN
  48. DULERA [Concomitant]
     Active Substance: FORMOTEROL FUMARATE DIHYDRATE\MOMETASONE FUROATE
  49. AZITHROMYCIN ANHYDROUS. [Concomitant]
     Active Substance: AZITHROMYCIN ANHYDROUS
  50. LEUCOVORIN CALCIUM. [Concomitant]
     Active Substance: LEUCOVORIN CALCIUM
  51. DARAPRIM [Concomitant]
     Active Substance: PYRIMETHAMINE

REACTIONS (12)
  - Osteoarthritis [Not Recovered/Not Resolved]
  - Economic problem [Unknown]
  - Osteoarthritis [Not Recovered/Not Resolved]
  - Arthritis [Not Recovered/Not Resolved]
  - Bone density decreased [Unknown]
  - Emotional distress [Unknown]
  - Bone loss [Unknown]
  - Anhedonia [Unknown]
  - Osteoporosis [Unknown]
  - Osteonecrosis [Unknown]
  - Anxiety [Unknown]
  - Pain [Unknown]

NARRATIVE: CASE EVENT DATE: 201801
